FAERS Safety Report 22102017 (Version 1)
Quarter: 2023Q1

REPORT INFORMATION
  Report Type: Spontaneous
  Country: US (occurrence: None)
  Receive Date: 20230315
  Receipt Date: 20230315
  Transmission Date: 20230418
  Serious: Yes (Death)
  Sender: FDA-Public Use
  Company Number: None

PATIENT
  Age: 78 Year
  Sex: Male

DRUGS (1)
  1. BOTOX [Suspect]
     Active Substance: ONABOTULINUMTOXINA
     Dosage: 100 UNITS OTHER  INTRAMUSCULAR?
     Route: 030

REACTIONS (1)
  - Disease progression [None]

NARRATIVE: CASE EVENT DATE: 20230308
